FAERS Safety Report 16674987 (Version 2)
Quarter: 2019Q3

REPORT INFORMATION
  Report Type: Spontaneous
  Country: US (occurrence: US)
  Receive Date: 20190806
  Receipt Date: 20190910
  Transmission Date: 20191004
  Serious: No
  Sender: FDA-Public Use
  Company Number: US-SA-2019SA208356

PATIENT
  Age: 58 Year
  Sex: Female

DRUGS (22)
  1. ZINC GLUCONATE [Concomitant]
     Active Substance: ZINC GLUCONATE
     Dosage: 1 DF, QD
  2. VITAMIN E [Concomitant]
     Active Substance: .ALPHA.-TOCOPHEROL
     Dosage: 2 DF, QD
  3. AZELASTINE HYDROCHLORIDE. [Concomitant]
     Active Substance: AZELASTINE HYDROCHLORIDE
     Dosage: 2 SPRAY PER NOSTRIL TWICE DAILY AS NEEDED
  4. ALBUTEROL SULFATE;IPRATROPIUM BROMIDE [Concomitant]
     Dosage: 3 ML, VIA NEBULIZER EVERY 4 TO 6 HOURS AS NEEDED
  5. VITAMIN K [VITAMIN K NOS] [Concomitant]
     Dosage: 500 MEQ, QD
  6. DUPIXENT [Suspect]
     Active Substance: DUPILUMAB
     Indication: ASTHMA
     Dosage: 300 MG, QOW
     Route: 058
     Dates: start: 20190301, end: 201908
  7. IBUPROFEN. [Concomitant]
     Active Substance: IBUPROFEN
     Dosage: 1 DF, Q6H AS NEEDED
     Route: 048
  8. ALLEGRA [Concomitant]
     Active Substance: FEXOFENADINE HYDROCHLORIDE
     Dosage: 1 DF, QD
     Route: 048
  9. TRAZODONE HYDROCHLORIDE. [Concomitant]
     Active Substance: TRAZODONE HYDROCHLORIDE
     Dosage: 1 DF, HS EVERY DAY
     Route: 048
  10. DEXAMETHASONE SODIUM PHOSPHATE. [Concomitant]
     Active Substance: DEXAMETHASONE SODIUM PHOSPHATE
     Indication: ADRENAL INSUFFICIENCY
     Dosage: 1 DF, PRN
  11. CITALOPRAM HYDROBROMIDE. [Concomitant]
     Active Substance: CITALOPRAM HYDROBROMIDE
     Dosage: 1 DF, QD
     Route: 048
  12. VITAMIN K [Concomitant]
     Active Substance: PHYTONADIONE
     Dosage: 5 DF, QD
  13. MONTELUKAST [Concomitant]
     Active Substance: MONTELUKAST SODIUM
     Dosage: 10 MG, QD
  14. REPLESTA [Concomitant]
     Active Substance: CHOLECALCIFEROL
     Dosage: 1 WAFER 2 TIMES A DAY FOR 4 DAYS; THEN 50,000IU ONCE A DAY FOR 3 DAYS
  15. CALCIUM [Concomitant]
     Active Substance: CALCIUM
     Dosage: 1 DF, QD
  16. DILTIAZEM. [Concomitant]
     Active Substance: DILTIAZEM
     Dosage: 1 DF, QD
     Route: 048
  17. SENOKOT [Concomitant]
     Active Substance: SENNOSIDES
     Dosage: 1 DF, QD
  18. BUDESONIDE. [Concomitant]
     Active Substance: BUDESONIDE
     Dosage: 0.5 MG, BID AS NEEDED
  19. VITAMIN C [Concomitant]
     Active Substance: ASCORBIC ACID
     Dosage: 1 DF, QD
  20. LORAZEPAM. [Concomitant]
     Active Substance: LORAZEPAM
     Dosage: 1 DF, AT BED TIME AS NEEDED
     Route: 048
  21. GABAPENTIN. [Concomitant]
     Active Substance: GABAPENTIN
     Dosage: 1 TO 2 CAPSULE ONE IN MORNING AND 2 AT BEDTIME
  22. FLUTICASONE. [Concomitant]
     Active Substance: FLUTICASONE
     Dosage: 2 DF, QD

REACTIONS (3)
  - Decreased immune responsiveness [Unknown]
  - Drug ineffective [Unknown]
  - Rash [Not Recovered/Not Resolved]

NARRATIVE: CASE EVENT DATE: 201905
